FAERS Safety Report 7315600-9 (Version None)
Quarter: 2011Q1

REPORT INFORMATION
  Report Type: 
  Country: None (occurrence: None)
  Receive Date: 20110215
  Receipt Date: 20110204
  Transmission Date: 20110831
  Serious: Yes (Hospitalization)
  Sender: FDA-Public Use
  Company Number: GER/UKI/10/0013545

PATIENT
  Age: 59 Year
  Sex: Male

DRUGS (2)
  1. BENDROFLUMETHIAZIDE (BENDROFLUMETHIAZIDE) [Concomitant]
  2. OMEPRAZOLE [Suspect]
     Indication: GASTROOESOPHAGEAL REFLUX DISEASE

REACTIONS (8)
  - DIARRHOEA [None]
  - HYPOCALCAEMIA [None]
  - PARAESTHESIA [None]
  - VOMITING [None]
  - FATIGUE [None]
  - NAUSEA [None]
  - HYPOMAGNESAEMIA [None]
  - DECREASED APPETITE [None]
